FAERS Safety Report 6780448-0 (Version None)
Quarter: 2010Q2

REPORT INFORMATION
  Report Type: 
  Country: None (occurrence: None)
  Receive Date: 20100621
  Receipt Date: 20100611
  Transmission Date: 20101027
  Serious: Yes (Hospitalization)
  Sender: FDA-Public Use
  Company Number: US-BIOGENIDEC-2008BI034694

PATIENT
  Age: 37 Year
  Sex: Female
  Weight: 70 kg

DRUGS (1)
  1. TYSABRI [Suspect]
     Indication: MULTIPLE SCLEROSIS
     Route: 042
     Dates: start: 20080925

REACTIONS (8)
  - BLOOD POTASSIUM DECREASED [None]
  - PHARYNGITIS [None]
  - PHARYNGITIS STREPTOCOCCAL [None]
  - POST PROCEDURAL COMPLICATION [None]
  - TONSILLECTOMY [None]
  - UPPER RESPIRATORY TRACT INFECTION [None]
  - URINARY TRACT INFECTION [None]
  - VAGINITIS BACTERIAL [None]
